FAERS Safety Report 21900685 (Version 2)
Quarter: 2023Q1

REPORT INFORMATION
  Report Type: Spontaneous
  Country: US (occurrence: US)
  Receive Date: 20230123
  Receipt Date: 20230123
  Transmission Date: 20230417
  Serious: No
  Sender: FDA-Public Use
  Company Number: US-NOVOPROD-976480

PATIENT
  Age: 37 Year
  Sex: Male

DRUGS (6)
  1. OZEMPIC [Suspect]
     Active Substance: SEMAGLUTIDE
     Indication: Obesity
  2. OZEMPIC [Suspect]
     Active Substance: SEMAGLUTIDE
     Indication: Non-alcoholic fatty liver
     Dosage: 1 MG, QW
     Route: 058
     Dates: start: 20210909
  3. OZEMPIC [Suspect]
     Active Substance: SEMAGLUTIDE
     Indication: Glucose tolerance impaired
  4. OZEMPIC [Suspect]
     Active Substance: SEMAGLUTIDE
     Indication: Glucose tolerance impaired
  5. OZEMPIC [Suspect]
     Active Substance: SEMAGLUTIDE
     Indication: Non-alcoholic fatty liver
     Dosage: 2 MG, QW
     Route: 058
     Dates: start: 20220506
  6. OZEMPIC [Suspect]
     Active Substance: SEMAGLUTIDE
     Indication: Obesity

REACTIONS (4)
  - Skin discomfort [Not Recovered/Not Resolved]
  - Pruritus [Recovered/Resolved]
  - Pain of skin [Not Recovered/Not Resolved]
  - Off label use [Unknown]

NARRATIVE: CASE EVENT DATE: 20220723
